FAERS Safety Report 5794801-5 (Version None)
Quarter: 2008Q2

REPORT INFORMATION
  Report Type: 
  Country: None (occurrence: None)
  Receive Date: 20080630
  Receipt Date: 20080619
  Transmission Date: 20081010
  Serious: Yes (Hospitalization)
  Sender: FDA-Public Use
  Company Number: A0727251A

PATIENT
  Age: 45 Year
  Sex: Male
  Weight: 68.2 kg

DRUGS (16)
  1. ADVAIR DISKUS 100/50 [Suspect]
     Indication: CHRONIC OBSTRUCTIVE PULMONARY DISEASE
     Dosage: 2PUFF TWICE PER DAY
     Route: 055
     Dates: start: 20080101, end: 20080401
  2. SPIRONOLACTONE [Concomitant]
  3. ALBUTEROL [Concomitant]
  4. PREZISTA [Concomitant]
  5. NORVIR [Concomitant]
  6. TRUVADA [Concomitant]
  7. UNSPECIFIED MEDICATION [Concomitant]
  8. LOMOTIL [Concomitant]
  9. HYOSCYAMINE [Concomitant]
  10. PERCOCET [Concomitant]
  11. OXYCODONE HCL [Concomitant]
  12. PERIOGARD [Concomitant]
  13. XANAX [Concomitant]
  14. TRAZODONE HCL [Concomitant]
  15. CORTICOSTEROIDS [Concomitant]
  16. MARINOL [Concomitant]

REACTIONS (4)
  - ABDOMINAL DISTENSION [None]
  - LOCAL SWELLING [None]
  - OVERDOSE [None]
  - SWELLING FACE [None]
